FAERS Safety Report 10704931 (Version 1)
Quarter: 2015Q1

REPORT INFORMATION
  Report Type: Spontaneous
  Country: US (occurrence: None)
  Receive Date: 20150109
  Receipt Date: 20150109
  Transmission Date: 20150721
  Serious: Yes (Hospitalization)
  Sender: FDA-Public Use
  Company Number: None

PATIENT
  Age: 67 Year
  Sex: Female
  Weight: 73.9 kg

DRUGS (4)
  1. PROCARBAZINE [Suspect]
     Active Substance: PROCARBAZINE
     Dosage: CYCLE 1 DAY 1 7/3/2013+#13; CYCLE 2 DAY 1 7/30/2013
     Dates: end: 20130710
  2. METHOTREXATE [Suspect]
     Active Substance: METHOTREXATE
     Dosage: CYCLE 1 DAY 1 7/3/2013+#13; CYCLE 2 DAY 1 7/30/2013
     Dates: end: 20130716
  3. RITUXIMAB (MOAB C2B8 ANTI CD20, CHIMERIC) [Suspect]
     Active Substance: RITUXIMAB
     Dosage: CYCLE 1 DAY 1 7/3/2013+#13; CYCLE 2 DAY 1 7/30/2013
     Dates: end: 20130715
  4. VINCRISTINE SULFATE. [Suspect]
     Active Substance: VINCRISTINE SULFATE
     Dosage: CYCLE 1 DAY 1 7/3/2013+#13; CYCLE 2 DAY 1 7/30/2013
     Dates: end: 20130716

REACTIONS (2)
  - Cerebral haemorrhage [None]
  - Deep vein thrombosis [None]

NARRATIVE: CASE EVENT DATE: 20130730
